FAERS Safety Report 12003643 (Version 1)
Quarter: 2016Q1

REPORT INFORMATION
  Report Type: Report from Study
  Country: BR (occurrence: BR)
  Receive Date: 20160204
  Receipt Date: 20160204
  Transmission Date: 20160526
  Serious: Yes (Other)
  Sender: FDA-Public Use
  Company Number: BR-BIOGEN-2015BI153407

PATIENT
  Age: 43 Year
  Sex: Female

DRUGS (10)
  1. LAMOTRIGINE. [Concomitant]
     Active Substance: LAMOTRIGINE
     Indication: PRODUCT USED FOR UNKNOWN INDICATION
     Route: 065
  2. ESOMEPRAZOLE [Concomitant]
     Active Substance: ESOMEPRAZOLE
     Indication: GASTRITIS
     Route: 065
  3. SIMVASTATINE [Concomitant]
     Active Substance: SIMVASTATIN
     Indication: BLOOD CHOLESTEROL
     Route: 065
  4. AMATO [Concomitant]
     Active Substance: TOPIRAMATE
     Indication: TRIGEMINAL NEURALGIA
     Route: 065
  5. HIDANTAL [Concomitant]
     Active Substance: PHENYTOIN SODIUM
     Indication: TRIGEMINAL NEURALGIA
     Route: 065
  6. FLUOXETINE [Concomitant]
     Active Substance: FLUOXETINE HYDROCHLORIDE
     Indication: TRIGEMINAL NEURALGIA
     Route: 065
  7. GABAPENTINE [Concomitant]
     Active Substance: GABAPENTIN
     Indication: TRIGEMINAL NEURALGIA
     Route: 065
  8. BACLOFEN. [Concomitant]
     Active Substance: BACLOFEN
     Indication: MULTIPLE SCLEROSIS
     Route: 065
  9. TYSABRI [Suspect]
     Active Substance: NATALIZUMAB
     Indication: MULTIPLE SCLEROSIS
     Route: 042
     Dates: start: 20150701, end: 201509
  10. ALENDRONATE SODIUM. [Concomitant]
     Active Substance: ALENDRONATE SODIUM
     Indication: OSTEOPOROSIS
     Route: 065

REACTIONS (17)
  - Hypotension [Not Recovered/Not Resolved]
  - Pulmonary mass [Not Recovered/Not Resolved]
  - Chills [Not Recovered/Not Resolved]
  - Vaginal infection [Unknown]
  - Pharyngeal mass [Not Recovered/Not Resolved]
  - Pharyngeal lesion [Not Recovered/Not Resolved]
  - Body temperature increased [Not Recovered/Not Resolved]
  - Tremor [Not Recovered/Not Resolved]
  - Sinusitis [Recovered/Resolved]
  - Multiple sclerosis relapse [Not Recovered/Not Resolved]
  - Visual impairment [Not Recovered/Not Resolved]
  - Decreased immune responsiveness [Not Recovered/Not Resolved]
  - Urinary tract infection [Recovered/Resolved]
  - Seizure [Recovered/Resolved]
  - Inflammation [Unknown]
  - Pneumonia [Recovered/Resolved]
  - Pharyngeal neoplasm [Not Recovered/Not Resolved]

NARRATIVE: CASE EVENT DATE: 201507
